FAERS Safety Report 7488065-4 (Version None)
Quarter: 2011Q2

REPORT INFORMATION
  Report Type: 
  Country: None (occurrence: None)
  Receive Date: 20110518
  Receipt Date: 20110509
  Transmission Date: 20111010
  Serious: Yes (Hospitalization)
  Sender: FDA-Public Use
  Company Number: US-ASTRAZENECA-2011SE09105

PATIENT
  Age: 47 Year
  Sex: Female

DRUGS (2)
  1. TOPROL-XL [Suspect]
     Route: 048
     Dates: start: 20100101
  2. CRESTOR [Suspect]
     Route: 048
     Dates: start: 20100101

REACTIONS (1)
  - PHARYNGEAL OPERATION [None]
